FAERS Safety Report 4586627-5 (Version None)
Quarter: 2005Q1

REPORT INFORMATION
  Report Type: 
  Country: None (occurrence: None)
  Receive Date: 20050218
  Receipt Date: 20040805
  Transmission Date: 20050727
  Serious: No
  Sender: FDA-Public Use
  Company Number: US-BRISTOL-MYERS SQUIBB COMPANY-12661963

PATIENT
  Age: 48 Year
  Sex: Female
  Weight: 90 kg

DRUGS (5)
  1. TAXOL [Suspect]
     Indication: BREAST CANCER
     Dosage: INITIAL DOSE: 06-JUL-2004
     Route: 042
     Dates: start: 20040720, end: 20040720
  2. DECADRON [Concomitant]
     Indication: PREMEDICATION
     Dates: start: 20040706, end: 20040720
  3. ANZEMET [Concomitant]
     Indication: PREMEDICATION
     Dates: start: 20040706, end: 20040720
  4. BENADRYL [Concomitant]
     Indication: PREMEDICATION
     Dates: start: 20040706, end: 20040720
  5. TAGAMET [Concomitant]
     Indication: PREMEDICATION
     Route: 042
     Dates: start: 20040706, end: 20040720

REACTIONS (2)
  - NAIL DISCOMFORT [None]
  - NAIL DISORDER [None]
